FAERS Safety Report 25941639 (Version 2)
Quarter: 2025Q4

REPORT INFORMATION
  Report Type: Spontaneous
  Country: LB (occurrence: LB)
  Receive Date: 20251020
  Receipt Date: 20251022
  Transmission Date: 20260117
  Serious: Yes (Life-Threatening, Hospitalization, Other)
  Sender: PFIZER
  Company Number: LB-MLMSERVICE-20251010-PI673152-00058-1

PATIENT
  Age: 40 Year
  Sex: Female

DRUGS (2)
  1. ATROPINE SULFATE [Suspect]
     Active Substance: ATROPINE SULFATE
     Indication: Anaesthesia reversal
     Dosage: 1.6 MG (0.02 MG/KG)
     Route: 042
  2. NEOSTIGMINE [Suspect]
     Active Substance: NEOSTIGMINE
     Indication: Anaesthesia reversal
     Dosage: 3.2 MG (0.04 MG/KG)
     Route: 042

REACTIONS (2)
  - Ventricular fibrillation [Recovered/Resolved]
  - Stress cardiomyopathy [Recovering/Resolving]
